FAERS Safety Report 17685608 (Version 1)
Quarter: 2020Q2

REPORT INFORMATION
  Report Type: Spontaneous
  Country: US (occurrence: US)
  Receive Date: 20200417
  Receipt Date: 20200417
  Transmission Date: 20200714
  Serious: No
  Sender: FDA-Public Use
  Company Number: None

PATIENT
  Age: 80 Year
  Sex: Female

DRUGS (2)
  1. PROCRIT [Suspect]
     Active Substance: ERYTHROPOIETIN
     Dosage: ?          OTHER STRENGTH:40000U/ML;?
     Route: 058
     Dates: start: 201904
  2. PROCRIT [Suspect]
     Active Substance: ERYTHROPOIETIN
     Dosage: ?          OTHER STRENGTH:40000U/ML;?
     Route: 058
     Dates: start: 201904

REACTIONS (3)
  - Needle issue [None]
  - Product packaging quantity issue [None]
  - Syringe issue [None]

NARRATIVE: CASE EVENT DATE: 20200417
